FAERS Safety Report 16054908 (Version 1)
Quarter: 2019Q1

REPORT INFORMATION
  Report Type: Spontaneous
  Country: HU (occurrence: HU)
  Receive Date: 20190310
  Receipt Date: 20190310
  Transmission Date: 20190418
  Serious: Yes (Hospitalization)
  Sender: FDA-Public Use
  Company Number: HU-ACCORD-111718

PATIENT
  Age: 59 Year
  Sex: Male

DRUGS (3)
  1. OXALIPLATIN ACCORD [Suspect]
     Active Substance: OXALIPLATIN
     Indication: RECTOSIGMOID CANCER
     Route: 042
     Dates: start: 20190114, end: 20190114
  2. METHYLPREDNISOLONE. [Concomitant]
     Active Substance: METHYLPREDNISOLONE
     Route: 042
  3. SUPRASTIN [Concomitant]
     Active Substance: CHLOROPYRAMINE HYDROCHLORIDE
     Dosage: 1 AMPOULE
     Route: 042

REACTIONS (3)
  - Hyperhidrosis [Unknown]
  - Dyspnoea [Unknown]
  - Erythema [Unknown]

NARRATIVE: CASE EVENT DATE: 20190114
